FAERS Safety Report 14825952 (Version 3)
Quarter: 2018Q2

REPORT INFORMATION
  Report Type: Spontaneous
  Country: JP (occurrence: JP)
  Receive Date: 20180430
  Receipt Date: 20180606
  Transmission Date: 20180711
  Serious: Yes (Other)
  Sender: FDA-Public Use
  Company Number: JP-009507513-1804JPN002273J

PATIENT
  Age: 50 Year
  Sex: Male
  Weight: 55 kg

DRUGS (6)
  1. CONIEL [Suspect]
     Active Substance: BENIDIPINE HYDROCHLORIDE
     Indication: HYPERTENSION
     Dosage: 4 MG, BID
     Route: 048
     Dates: start: 20171215, end: 20180218
  2. TRANSAMIN [Concomitant]
     Active Substance: TRANEXAMIC ACID
     Indication: HAEMOSTASIS
     Dosage: 1 DF, QD
     Route: 042
     Dates: start: 20171214, end: 20171215
  3. NICARDIPINE HYDROCHLORIDE. [Concomitant]
     Active Substance: NICARDIPINE HYDROCHLORIDE
     Indication: HYPERTENSION
     Dosage: 5 DF, UNK
     Route: 042
     Dates: start: 20171214, end: 20171214
  4. OLMESARTAN MEDOXOMIL. [Suspect]
     Active Substance: OLMESARTAN MEDOXOMIL
     Indication: HYPERTENSION
     Dosage: 20 MG, QD
     Route: 048
     Dates: start: 20180219, end: 20180319
  5. BELSOMRA [Suspect]
     Active Substance: SUVOREXANT
     Indication: INSOMNIA
     Dosage: 15 MG, QD
     Route: 048
     Dates: start: 20171215, end: 20180315
  6. URSO [Suspect]
     Active Substance: URSODIOL
     Indication: PNEUMONIA
     Dosage: 50 MG, TID
     Route: 048
     Dates: start: 20171215, end: 20180318

REACTIONS (2)
  - Myelodysplastic syndrome [Unknown]
  - Neutrophil count decreased [Not Recovered/Not Resolved]

NARRATIVE: CASE EVENT DATE: 20171225
